FAERS Safety Report 9756478 (Version 1)
Quarter: 2013Q4

REPORT INFORMATION
  Report Type: Spontaneous
  Country: US (occurrence: US)
  Receive Date: 20131213
  Receipt Date: 20131213
  Transmission Date: 20140711
  Serious: No
  Sender: FDA-Public Use
  Company Number: US-GLAXOSMITHKLINE-A1042768A

PATIENT
  Age: 32 Year
  Sex: Female
  Weight: 66 kg

DRUGS (5)
  1. EQUATE NTS 21MG, CLEAR [Suspect]
     Indication: EX-TOBACCO USER
     Dates: start: 20130913, end: 20130920
  2. STEROIDS [Concomitant]
  3. ANTIBIOTICS [Concomitant]
  4. ALBUTEROL INHALER [Concomitant]
  5. COUGH SUPPRESSANT [Concomitant]

REACTIONS (9)
  - Hypersensitivity [Not Recovered/Not Resolved]
  - Headache [Not Recovered/Not Resolved]
  - Feeling hot [Not Recovered/Not Resolved]
  - Flushing [Not Recovered/Not Resolved]
  - Fatigue [Not Recovered/Not Resolved]
  - Asthenia [Not Recovered/Not Resolved]
  - Decreased appetite [Not Recovered/Not Resolved]
  - Dry mouth [Not Recovered/Not Resolved]
  - Application site erythema [Not Recovered/Not Resolved]
